FAERS Safety Report 15189225 (Version 2)
Quarter: 2018Q4

REPORT INFORMATION
  Report Type: Report from Study
  Country: HU (occurrence: HU)
  Receive Date: 20180724
  Receipt Date: 20181009
  Transmission Date: 20190204
  Serious: Yes (Death, Hospitalization, Other)
  Sender: FDA-Public Use
  Company Number: HU-MYLANLABS-2018M1053451

PATIENT
  Age: 71 Year
  Sex: Male
  Weight: 68 kg

DRUGS (8)
  1. ZOLEDRONIC ACID [Suspect]
     Active Substance: ZOLEDRONIC ACID
     Indication: PRODUCT USED FOR UNKNOWN INDICATION
     Dosage: UNK
     Route: 065
  2. MEDROL [Concomitant]
     Active Substance: METHYLPREDNISOLONE
     Indication: PRODUCT USED FOR UNKNOWN INDICATION
     Dosage: UNK
     Route: 042
  3. TAFINLAR [Suspect]
     Active Substance: DABRAFENIB MESYLATE
     Indication: MALIGNANT MELANOMA
     Dosage: 150 MG, QD
     Route: 048
     Dates: start: 20171116
  4. ALGOPYRIN                          /00046501/ [Suspect]
     Active Substance: AMINOPHENAZONE
     Indication: PRODUCT USED FOR UNKNOWN INDICATION
     Dosage: 1 G, UNK
     Route: 065
  5. MEKINIST [Suspect]
     Active Substance: TRAMETINIB DIMETHYL SULFOXIDE
     Indication: MALIGNANT MELANOMA
     Dosage: 2 MG, QD
     Route: 048
     Dates: start: 20171116
  6. ORADEXON                           /00016001/ [Concomitant]
     Indication: PRODUCT USED FOR UNKNOWN INDICATION
     Dosage: UNK
     Route: 065
  7. MANNISOL [Concomitant]
     Indication: PRODUCT USED FOR UNKNOWN INDICATION
     Dosage: UNK
     Route: 065
  8. MORPHINE [Concomitant]
     Active Substance: MORPHINE
     Indication: PRODUCT USED FOR UNKNOWN INDICATION
     Dosage: UNK
     Route: 065

REACTIONS (26)
  - Muscle tightness [Unknown]
  - Metastases to skin [Unknown]
  - Dysphagia [Unknown]
  - Hypokinesia [Unknown]
  - Heart rate increased [Unknown]
  - Metastasis [Unknown]
  - Generalised tonic-clonic seizure [Unknown]
  - Hyporesponsive to stimuli [Unknown]
  - Seizure [Unknown]
  - Confusional state [Fatal]
  - Cardio-respiratory distress [Fatal]
  - Fall [Recovering/Resolving]
  - Tremor [Unknown]
  - Pyrexia [Recovering/Resolving]
  - Hypophagia [Unknown]
  - Asthenia [Unknown]
  - Mydriasis [Unknown]
  - Metastases to central nervous system [Unknown]
  - Neoplasm malignant [Fatal]
  - Pneumonia [Fatal]
  - Disturbance in attention [Unknown]
  - Nodule [Recovering/Resolving]
  - Arteriosclerosis [Unknown]
  - Abnormal behaviour [Unknown]
  - Aphasia [Unknown]
  - Staring [Unknown]

NARRATIVE: CASE EVENT DATE: 20180110
